FAERS Safety Report 10908101 (Version 2)
Quarter: 2015Q3

REPORT INFORMATION
  Report Type: Spontaneous
  Country: US (occurrence: US)
  Receive Date: 20150312
  Receipt Date: 20150924
  Transmission Date: 20151125
  Serious: No
  Sender: FDA-Public Use
  Company Number: US-INCYTE CORPORATION-2015IN000042

PATIENT
  Age: 58 Year
  Sex: Male
  Weight: 78 kg

DRUGS (10)
  1. DOXEPIN [Concomitant]
     Active Substance: DOXEPIN
  2. ASPIRIN. [Concomitant]
     Active Substance: ASPIRIN
  3. HYDROXYZINE [Concomitant]
     Active Substance: HYDROXYZINE\HYDROXYZINE HYDROCHLORIDE
  4. ZANTAC [Concomitant]
     Active Substance: RANITIDINE HYDROCHLORIDE
  5. JAKAFI [Suspect]
     Active Substance: RUXOLITINIB
     Indication: MYELOFIBROSIS
     Dosage: 20 MG, BID
     Route: 048
     Dates: start: 20131113
  6. JAKAFI [Suspect]
     Active Substance: RUXOLITINIB
     Indication: POLYCYTHAEMIA VERA
  7. HYDROCORTISONE. [Concomitant]
     Active Substance: HYDROCORTISONE
  8. IBUPROFEN. [Concomitant]
     Active Substance: IBUPROFEN
  9. CLARITIN [Concomitant]
     Active Substance: LORATADINE
  10. CYCLOBENZAPRINE [Concomitant]
     Active Substance: CYCLOBENZAPRINE

REACTIONS (1)
  - Wound [Not Recovered/Not Resolved]

NARRATIVE: CASE EVENT DATE: 201402
